FAERS Safety Report 10470791 (Version 2)
Quarter: 2014Q4

REPORT INFORMATION
  Report Type: Spontaneous
  Country: TW (occurrence: TW)
  Receive Date: 20140923
  Receipt Date: 20141030
  Transmission Date: 20150528
  Serious: Yes (Other)
  Sender: FDA-Public Use
  Company Number: TW-GLAXOSMITHKLINE-B1035358A

PATIENT

DRUGS (4)
  1. RYTHMOL [Suspect]
     Active Substance: PROPAFENONE HYDROCHLORIDE
     Indication: PRODUCT USED FOR UNKNOWN INDICATION
     Dosage: 150 MG, TID
     Route: 065
     Dates: start: 20121225
  2. AMINOPHYLLINE [Concomitant]
     Active Substance: AMINOPHYLLINE
  3. GASTER [Concomitant]
     Active Substance: FAMOTIDINE
  4. PRIMPERAN (METOCLOPRAMIDE) [Concomitant]

REACTIONS (2)
  - Cardiac arrest [Recovering/Resolving]
  - Heart rate irregular [Recovering/Resolving]

NARRATIVE: CASE EVENT DATE: 20140909
